FAERS Safety Report 14874142 (Version 3)
Quarter: 2018Q4

REPORT INFORMATION
  Report Type: Spontaneous
  Country: DE (occurrence: DE)
  Receive Date: 20180510
  Receipt Date: 20181005
  Transmission Date: 20190204
  Serious: Yes (Hospitalization, Other)
  Sender: FDA-Public Use
  Company Number: DE-AUROBINDO-AUR-APL-2016-05470

PATIENT
  Age: 50 Year
  Sex: Male

DRUGS (13)
  1. ZYPREXA [Suspect]
     Active Substance: OLANZAPINE
     Dosage: DAILY DOSE: 10 MG MILLIGRAM(S) EVERY DAY
     Route: 048
     Dates: start: 20130806, end: 20130807
  2. LEVOTHYROXINE. [Concomitant]
     Active Substance: LEVOTHYROXINE
     Indication: HYPOTHYROIDISM
     Dosage: 50 MICROGRAM, ONCE A DAY
     Route: 065
  3. OLANZAPINE. [Suspect]
     Active Substance: OLANZAPINE
     Indication: MANIA
     Dosage: 25 MILLIGRAM, ONCE A DAY
     Dates: start: 20130723
  4. ZYPREXA [Suspect]
     Active Substance: OLANZAPINE
     Dosage: DAILY DOSE: 20 MG MILLIGRAM(S) EVERY DAY
     Route: 048
     Dates: start: 20130802, end: 20130804
  5. OLANZAPINE. [Suspect]
     Active Substance: OLANZAPINE
     Indication: SCHIZOAFFECTIVE DISORDER
     Dosage: UP TO 20 MG/DAY OLANZAPINE
  6. ZYPREXA [Suspect]
     Active Substance: OLANZAPINE
     Indication: DEPRESSION
     Dosage: DAILY DOSE: 15 MG MILLIGRAM(S) EVERY DAY
     Route: 048
     Dates: start: 20130623, end: 20130716
  7. ZYPREXA [Suspect]
     Active Substance: OLANZAPINE
     Dosage: DAILY DOSE: 25 MG MILLIGRAM(S) EVERY DAY
     Route: 048
     Dates: start: 20130724, end: 20130801
  8. ZYPREXA [Suspect]
     Active Substance: OLANZAPINE
     Dosage: DAILY DOSE: 15 MG MILLIGRAM(S) EVERY DAY
     Route: 048
     Dates: start: 20130805, end: 20130805
  9. PROTHIPENDYL [Concomitant]
     Active Substance: PROTHIPENDYL
     Indication: INITIAL INSOMNIA
     Dosage: 80 MILLIGRAM, ONCE A DAY
     Route: 065
  10. PROTHIPENDYL [Concomitant]
     Active Substance: PROTHIPENDYL
     Indication: SLEEP DISORDER
  11. ZYPREXA [Suspect]
     Active Substance: OLANZAPINE
     Indication: SCHIZOAFFECTIVE DISORDER
     Dosage: UNK, UNKNOWN
     Route: 065
     Dates: start: 2007
  12. ZYPREXA [Suspect]
     Active Substance: OLANZAPINE
     Dosage: DAILY DOSE: 20 MG MILLIGRAM(S) EVERY DAY
     Route: 048
     Dates: start: 20130717, end: 20130723
  13. ZYPREXA [Suspect]
     Active Substance: OLANZAPINE
     Dosage: DAILY DOSE: 5 MG MILLIGRAM(S) EVERY DAY
     Route: 048
     Dates: start: 20130808, end: 20130809

REACTIONS (11)
  - Disorientation [Recovered/Resolved]
  - Confusional state [Not Recovered/Not Resolved]
  - Sleep disorder [Recovered/Resolved]
  - Insomnia [Unknown]
  - Bipolar disorder [Unknown]
  - Amnesia [Unknown]
  - Restlessness [Not Recovered/Not Resolved]
  - Somnambulism [Recovered/Resolved]
  - Hyperhidrosis [Unknown]
  - Supraventricular extrasystoles [Unknown]
  - Prescribed overdose [Unknown]

NARRATIVE: CASE EVENT DATE: 20130724
